FAERS Safety Report 8598555-9 (Version None)
Quarter: 2012Q3

REPORT INFORMATION
  Report Type: 
  Country: None (occurrence: None)
  Receive Date: 20120816
  Receipt Date: 20120807
  Transmission Date: 20120928
  Serious: Yes (Hospitalization)
  Sender: FDA-Public Use
  Company Number: DE-ROCHE-1098436

PATIENT
  Sex: Female
  Weight: 100 kg

DRUGS (4)
  1. XELODA [Suspect]
     Indication: BREAST CANCER
     Dosage: DOSE ACCORDING TO PROTOCOL
     Dates: start: 20111108, end: 20120717
  2. BISOPROLOL FUMARATE [Concomitant]
     Dosage: 10/25 MG DAILY
     Dates: start: 20040101
  3. AVASTIN [Suspect]
     Indication: BREAST CANCER
     Dosage: DOSE ACCORDING TO PROTOCOL
     Dates: start: 20111108, end: 20120717
  4. XGEVA [Concomitant]
     Dates: start: 20111206

REACTIONS (1)
  - DISEASE PROGRESSION [None]
